FAERS Safety Report 20834904 (Version 1)
Quarter: 2022Q2

REPORT INFORMATION
  Report Type: Spontaneous
  Country: NL (occurrence: NL)
  Receive Date: 20220516
  Receipt Date: 20220516
  Transmission Date: 20220721
  Serious: Yes (Other)
  Sender: FDA-Public Use
  Company Number: None

PATIENT
  Sex: Male
  Weight: 72 kg

DRUGS (5)
  1. TAMSULOSIN [Suspect]
     Active Substance: TAMSULOSIN
     Indication: Benign prostatic hyperplasia
     Dosage: 0.4 MILLIGRAM, QD (1X PER DAY 1 CAPSULE)
     Dates: start: 2018
  2. CLOPIDOGREL BESILATE [Concomitant]
     Active Substance: CLOPIDOGREL BESILATE
     Dosage: 75 MILLIGRAM/TABLET, 75 MG (MILLIGRAM)
  3. METOPROLOL [Concomitant]
     Active Substance: METOPROLOL
     Dosage: 25 MILLIGRAM/TABLET MET GEREGULEERDE AFGIFTE, 25 MG (MILLIGRAM)
  4. PRAVASTATIN [Concomitant]
     Active Substance: PRAVASTATIN
     Dosage: 20 MILLIGRAM/TABLET, 20 MG (MILLIGRAM)
  5. PROMETHAZINE [Concomitant]
     Active Substance: PROMETHAZINE HYDROCHLORIDE
     Dosage: 25 MILLIGRAM/OMHULDE TABLET, 25 MG (MILLIGRAM)

REACTIONS (2)
  - Retrograde ejaculation [Not Recovered/Not Resolved]
  - Gynaecomastia [Not Recovered/Not Resolved]
